FAERS Safety Report 9330541 (Version 1)
Quarter: 2013Q2

REPORT INFORMATION
  Report Type: Spontaneous
  Country: US (occurrence: None)
  Receive Date: 20130604
  Receipt Date: 20130604
  Transmission Date: 20140414
  Serious: No
  Sender: FDA-Public Use
  Company Number: None

PATIENT
  Age: 55 Year
  Sex: Male
  Weight: 73.48 kg

DRUGS (2)
  1. CODEINE [Suspect]
     Indication: HEADACHE
     Dosage: 15 TABLETS ORAL
     Route: 048
     Dates: start: 201305
  2. CODEINE [Suspect]
     Indication: NECK PAIN
     Dosage: 15 TABLETS ORAL
     Route: 048
     Dates: start: 201305

REACTIONS (2)
  - Drug ineffective [None]
  - Product packaging quantity issue [None]
